FAERS Safety Report 11254524 (Version 2)
Quarter: 2016Q4

REPORT INFORMATION
  Report Type: Spontaneous
  Country: US (occurrence: US)
  Receive Date: 20150709
  Receipt Date: 20161102
  Transmission Date: 20170206
  Serious: No
  Sender: FDA-Public Use
  Company Number: US-PFIZER INC-2015228105

PATIENT
  Age: 44 Year
  Sex: Female

DRUGS (1)
  1. XANAX [Suspect]
     Active Substance: ALPRAZOLAM
     Dosage: UNK

REACTIONS (1)
  - Drug hypersensitivity [Not Recovered/Not Resolved]
